FAERS Safety Report 10931033 (Version 1)
Quarter: 2015Q1

REPORT INFORMATION
  Report Type: Spontaneous
  Country: US (occurrence: US)
  Receive Date: 20150319
  Receipt Date: 20150319
  Transmission Date: 20150721
  Serious: Yes (Hospitalization)
  Sender: FDA-Public Use
  Company Number: US-JNJFOC-20150304793

PATIENT
  Sex: Female
  Weight: 61.24 kg

DRUGS (1)
  1. ORTHO EVRA [Suspect]
     Active Substance: ETHINYL ESTRADIOL\NORELGESTROMIN
     Indication: CONTRACEPTION
     Route: 062

REACTIONS (5)
  - Lower extremity mass [Not Recovered/Not Resolved]
  - Drug dose omission [Unknown]
  - Mood swings [Unknown]
  - Pain in extremity [Not Recovered/Not Resolved]
  - Ligament operation [Recovered/Resolved]
